FAERS Safety Report 4705119-3 (Version None)
Quarter: 2005Q3

REPORT INFORMATION
  Report Type: 
  Country: None (occurrence: None)
  Receive Date: 20050701
  Receipt Date: 20050620
  Transmission Date: 20060218
  Serious: Yes (Hospitalization)
  Sender: FDA-Public Use
  Company Number: 200512068FR

PATIENT
  Age: 84 Year
  Sex: Male

DRUGS (6)
  1. DOLIPRANE [Suspect]
     Route: 048
  2. LASIX [Suspect]
     Route: 048
  3. PREVISCAN [Suspect]
     Route: 048
     Dates: end: 20050516
  4. OMIX [Suspect]
     Route: 048
  5. NOVONORM [Suspect]
     Route: 048
  6. FORLAX [Concomitant]
     Route: 048

REACTIONS (5)
  - DRUG INTERACTION [None]
  - DYSPNOEA [None]
  - GENERAL PHYSICAL HEALTH DETERIORATION [None]
  - INTERNATIONAL NORMALISED RATIO INCREASED [None]
  - PROTHROMBIN LEVEL DECREASED [None]
